FAERS Safety Report 5659628-3 (Version None)
Quarter: 2008Q1

REPORT INFORMATION
  Report Type: 
  Country: None (occurrence: None)
  Receive Date: 20080310
  Receipt Date: 20080310
  Transmission Date: 20080703
  Serious: Yes (Other)
  Sender: FDA-Public Use
  Company Number: None

PATIENT
  Age: 72 Year
  Sex: Female
  Weight: 65.7716 kg

DRUGS (2)
  1. PREMARIN [Suspect]
     Indication: HYSTERECTOMY
     Dosage: 1 DAILY 5 DA. PO
     Route: 048
     Dates: start: 19851015, end: 20080309
  2. PREMARIN [Suspect]

REACTIONS (4)
  - BREAST PAIN [None]
  - PHARMACEUTICAL PRODUCT COMPLAINT [None]
  - VAGINAL DISCHARGE [None]
  - WEIGHT INCREASED [None]
